FAERS Safety Report 11103595 (Version 1)
Quarter: 2015Q2

REPORT INFORMATION
  Report Type: Spontaneous
  Country: US (occurrence: US)
  Receive Date: 20150511
  Receipt Date: 20150511
  Transmission Date: 20150821
  Serious: Yes (Other)
  Sender: FDA-Public Use
  Company Number: US-GLAXOSMITHKLINE-US2015GSK062171

PATIENT
  Age: 19 Year
  Sex: Male

DRUGS (1)
  1. ALBUTEROL. [Suspect]
     Active Substance: ALBUTEROL
     Indication: ASTHMA

REACTIONS (6)
  - Dyspnoea [Unknown]
  - Anxiety [Unknown]
  - Lactic acidosis [Recovered/Resolved]
  - Tachycardia [Unknown]
  - Wheezing [Unknown]
  - Hypotension [Unknown]
